FAERS Safety Report 15005307 (Version 1)
Quarter: 2018Q2

REPORT INFORMATION
  Report Type: Spontaneous
  Country: GB (occurrence: GB)
  Receive Date: 20180613
  Receipt Date: 20180613
  Transmission Date: 20180711
  Serious: Yes (Hospitalization)
  Sender: FDA-Public Use
  Company Number: GB-ACCORD-068123

PATIENT
  Age: 84 Year
  Sex: Female
  Weight: 55 kg

DRUGS (11)
  1. ISOSORBIDE. [Suspect]
     Active Substance: ISOSORBIDE
     Indication: ANGINA PECTORIS
     Dosage: IN THE MORNING
     Route: 048
     Dates: end: 20171013
  2. NOVOMIX [Concomitant]
     Active Substance: INSULIN ASPART
  3. SPIRONOLACTONE. [Suspect]
     Active Substance: SPIRONOLACTONE
     Indication: CHRONIC LEFT VENTRICULAR FAILURE
     Dosage: IN THE MORNING
     Route: 048
  4. BUMETANIDE. [Suspect]
     Active Substance: BUMETANIDE
     Indication: CHRONIC LEFT VENTRICULAR FAILURE
     Route: 048
  5. CANDESARTAN. [Suspect]
     Active Substance: CANDESARTAN
     Indication: CHRONIC LEFT VENTRICULAR FAILURE
     Dosage: IN THE MORNING
     Route: 048
  6. BETAHISTINE [Concomitant]
     Active Substance: BETAHISTINE
  7. ATORVASTATIN [Concomitant]
     Active Substance: ATORVASTATIN
  8. GLYCERYL TRINITRATE [Concomitant]
     Active Substance: NITROGLYCERIN
  9. LEVOTHYROXINE. [Concomitant]
     Active Substance: LEVOTHYROXINE
  10. BISOPROLOL [Suspect]
     Active Substance: BISOPROLOL
     Indication: CHRONIC LEFT VENTRICULAR FAILURE
     Route: 048
  11. PARACETAMOL [Concomitant]
     Active Substance: ACETAMINOPHEN

REACTIONS (2)
  - Orthostatic hypotension [Recovered/Resolved]
  - Balance disorder [Unknown]

NARRATIVE: CASE EVENT DATE: 201705
